FAERS Safety Report 5099013-9 (Version None)
Quarter: 2006Q3

REPORT INFORMATION
  Report Type: 
  Country: None (occurrence: None)
  Receive Date: 20060731
  Receipt Date: 20051118
  Transmission Date: 20061208
  Serious: Yes (Other)
  Sender: FDA-Public Use
  Company Number: 219664

PATIENT
  Age: 66 Year
  Sex: Male

DRUGS (4)
  1. RITUXAN [Suspect]
     Indication: CHRONIC LYMPHOCYTIC LEUKAEMIA
     Dosage: 750 MG, INTRAVENOUS
     Route: 042
     Dates: start: 20050926, end: 20050926
  2. FLUDARABINE PHOSPHATE [Concomitant]
  3. CYTOXAN [Concomitant]
  4. IV FLUIDS (UNK INGREDIENTS) (INTRAVENOUS SOLUTION NOS) [Concomitant]

REACTIONS (1)
  - TUMOUR LYSIS SYNDROME [None]
